FAERS Safety Report 12720194 (Version 1)
Quarter: 2016Q3

REPORT INFORMATION
  Report Type: Spontaneous
  Country: GB (occurrence: GB)
  Receive Date: 20160907
  Receipt Date: 20160907
  Transmission Date: 20161109
  Serious: Yes (Other)
  Sender: FDA-Public Use
  Company Number: GB-SUN PHARMACEUTICAL INDUSTRIES LTD-2016RR-123115

PATIENT
  Age: 13 Week
  Sex: Male

DRUGS (1)
  1. CODEINE [Suspect]
     Active Substance: CODEINE
     Indication: ABDOMINAL PAIN LOWER
     Dosage: 60 MG, TOTAL
     Route: 063
     Dates: start: 20160721

REACTIONS (3)
  - Hypopnoea [Unknown]
  - Floppy infant [Unknown]
  - Exposure during breast feeding [Unknown]

NARRATIVE: CASE EVENT DATE: 20160721
